FAERS Safety Report 14105892 (Version 2)
Quarter: 2017Q4

REPORT INFORMATION
  Report Type: Report from Study
  Country: IT (occurrence: IT)
  Receive Date: 20171019
  Receipt Date: 20171024
  Transmission Date: 20180321
  Serious: Yes (Hospitalization)
  Sender: FDA-Public Use
  Company Number: IT-ASTRAZENECA-2017SE97962

PATIENT
  Age: 69 Year
  Sex: Male
  Weight: 57 kg

DRUGS (9)
  1. MEDI4736 [Suspect]
     Active Substance: DURVALUMAB
     Indication: SQUAMOUS CELL CARCINOMA OF HEAD AND NECK
     Dosage: 600.0MG ONCE/SINGLE ADMINISTRATION
     Route: 042
     Dates: start: 20170808, end: 20170808
  2. VALSARTAN. [Concomitant]
     Active Substance: VALSARTAN
     Dates: start: 201604
  3. INDACATEROL [Concomitant]
     Active Substance: INDACATEROL
     Dates: start: 1977
  4. MEDI4736 [Suspect]
     Active Substance: DURVALUMAB
     Indication: SQUAMOUS CELL CARCINOMA OF HEAD AND NECK
     Dosage: 600.0MG ONCE/SINGLE ADMINISTRATION
     Route: 042
     Dates: start: 20170907, end: 20170907
  5. LANSOPRAZOLE. [Concomitant]
     Active Substance: LANSOPRAZOLE
     Indication: PROPHYLAXIS
     Dates: start: 1977
  6. MEDI4736 [Suspect]
     Active Substance: DURVALUMAB
     Indication: SQUAMOUS CELL CARCINOMA OF HEAD AND NECK
     Dosage: 600.0MG ONCE/SINGLE ADMINISTRATION
     Route: 042
     Dates: start: 20170725, end: 20170725
  7. MEDI4736 [Suspect]
     Active Substance: DURVALUMAB
     Indication: SQUAMOUS CELL CARCINOMA OF HEAD AND NECK
     Dosage: 600.0MG ONCE/SINGLE ADMINISTRATION
     Route: 042
     Dates: start: 20170711, end: 20170711
  8. MEDI4736 [Suspect]
     Active Substance: DURVALUMAB
     Indication: SQUAMOUS CELL CARCINOMA OF HEAD AND NECK
     Dosage: 600.0MG ONCE/SINGLE ADMINISTRATION
     Route: 042
     Dates: start: 20170822, end: 20170822
  9. MEDI4736 [Suspect]
     Active Substance: DURVALUMAB
     Indication: SQUAMOUS CELL CARCINOMA OF HEAD AND NECK
     Dosage: 600.0MG ONCE/SINGLE ADMINISTRATION
     Route: 042
     Dates: start: 20171004, end: 20171004

REACTIONS (2)
  - Bronchitis [Recovered/Resolved]
  - Hyponatraemia [Recovered/Resolved]

NARRATIVE: CASE EVENT DATE: 20170907
